FAERS Safety Report 21021263 (Version 2)
Quarter: 2022Q3

REPORT INFORMATION
  Report Type: Spontaneous
  Country: UY (occurrence: UY)
  Receive Date: 20220629
  Receipt Date: 20220729
  Transmission Date: 20221027
  Serious: Yes (Other)
  Sender: FDA-Public Use
  Company Number: UY-PFIZER INC-PV202200008383

PATIENT
  Age: 9 Year
  Sex: Male

DRUGS (1)
  1. GENOTROPIN [Suspect]
     Active Substance: SOMATROPIN
     Indication: Growth hormone deficiency
     Dosage: 0.6 TO 1MG (7 TIMES PER WEEK), DAILY
     Dates: start: 20211123

REACTIONS (2)
  - Spinal cord disorder [Not Recovered/Not Resolved]
  - Neoplasm malignant [Not Recovered/Not Resolved]
